FAERS Safety Report 8621675-7 (Version None)
Quarter: 2012Q3

REPORT INFORMATION
  Report Type: 
  Country: None (occurrence: None)
  Receive Date: 20120825
  Receipt Date: 20120814
  Transmission Date: 20120928
  Serious: Yes (Other)
  Sender: FDA-Public Use
  Company Number: US-009507513-1208USA006713

PATIENT

DRUGS (2)
  1. SAPHRIS [Suspect]
     Indication: SCHIZOPHRENIA
     Dosage: 5 MG, BID
     Route: 060
     Dates: start: 20120225, end: 20120228
  2. SAPHRIS [Suspect]
     Dosage: 5 MG, UNK
     Route: 060
     Dates: start: 20120524

REACTIONS (3)
  - NAUSEA [None]
  - HYPERHIDROSIS [None]
  - CHEST PAIN [None]
